FAERS Safety Report 6714174-0 (Version None)
Quarter: 2010Q2

REPORT INFORMATION
  Report Type: 
  Country: None (occurrence: None)
  Receive Date: 20100506
  Receipt Date: 20100422
  Transmission Date: 20101027
  Serious: Yes (Hospitalization)
  Sender: FDA-Public Use
  Company Number: US-ROCHE-686299

PATIENT
  Sex: Female
  Weight: 63.5 kg

DRUGS (7)
  1. PEGASYS [Suspect]
     Indication: HEPATITIS C
     Dosage: FORM: PREFILLED SYRINGE, PATIENT WAS IN WEEK 5 OF TREATMENT.
     Route: 065
     Dates: start: 20100209, end: 20100316
  2. PEGASYS [Suspect]
     Dosage: FORM: PRE-FILLED SYRINGE
     Route: 065
     Dates: start: 20100318, end: 20100330
  3. COPEGUS [Suspect]
     Indication: HEPATITIS C
     Dosage: IN DIVIDED DOSES
     Route: 065
     Dates: start: 20100209, end: 20100316
  4. COPEGUS [Suspect]
     Route: 065
     Dates: start: 20100318, end: 20100330
  5. RIBASPHERE [Suspect]
     Indication: HEPATITIS C
     Route: 065
     Dates: start: 20100209, end: 20100316
  6. RIBASPHERE [Suspect]
     Route: 065
     Dates: start: 20100318, end: 20100330
  7. PLAQUENIL [Concomitant]
     Indication: RHEUMATOID ARTHRITIS
     Route: 065

REACTIONS (18)
  - ABDOMINAL PAIN UPPER [None]
  - ANAEMIA [None]
  - ARTHRALGIA [None]
  - ASTHENIA [None]
  - CHILLS [None]
  - DRY MOUTH [None]
  - DYSPNOEA [None]
  - EMOTIONAL DISORDER [None]
  - FATIGUE [None]
  - FEELING ABNORMAL [None]
  - FEELING DRUNK [None]
  - INTESTINAL ISCHAEMIA [None]
  - IRRITABILITY [None]
  - JUDGEMENT IMPAIRED [None]
  - NAUSEA [None]
  - PALLOR [None]
  - URINARY TRACT INFECTION [None]
  - WEIGHT DECREASED [None]
